FAERS Safety Report 17229401 (Version 1)
Quarter: 2020Q1

REPORT INFORMATION
  Report Type: Spontaneous
  Country: JP (occurrence: JP)
  Receive Date: 20200103
  Receipt Date: 20200103
  Transmission Date: 20200409
  Serious: Yes (Hospitalization)
  Sender: FDA-Public Use
  Company Number: JP-ASTRAZENECA-2019SF89392

PATIENT
  Sex: Male

DRUGS (1)
  1. TAGRISSO [Suspect]
     Active Substance: OSIMERTINIB
     Indication: NON-SMALL CELL LUNG CANCER
     Route: 048
     Dates: start: 201908

REACTIONS (4)
  - Pleural effusion [Unknown]
  - Dry skin [Unknown]
  - Dyspnoea [Unknown]
  - Blood pressure increased [Unknown]

NARRATIVE: CASE EVENT DATE: 2019
